FAERS Safety Report 22257262 (Version 2)
Quarter: 2023Q2

REPORT INFORMATION
  Report Type: Spontaneous
  Country: BR (occurrence: BR)
  Receive Date: 20230427
  Receipt Date: 20230530
  Transmission Date: 20230722
  Serious: Yes (Hospitalization, Other)
  Sender: FDA-Public Use
  Company Number: BR-BAXTER-2023BAX018611

PATIENT
  Age: 27 Year
  Sex: Female
  Weight: 68 kg

DRUGS (12)
  1. IRON [Suspect]
     Active Substance: IRON
     Indication: Anaemia
     Dosage: 3 AMPOULES DILUTED IN 250 ML OF 0.9% SALINE SOLUTION IN HALF AN HOUR VIA ENDOVENOUS ROUTE
     Route: 042
     Dates: end: 20230406
  2. SODIUM CHLORIDE [Suspect]
     Active Substance: SODIUM CHLORIDE
     Indication: Medication dilution
     Dosage: 250 ML VIA ENDOVENOUS ROUTE
     Route: 042
     Dates: end: 20230406
  3. ONDANSETRON [Suspect]
     Active Substance: ONDANSETRON
     Indication: Drug therapy
     Dosage: UNK
     Route: 042
     Dates: start: 20230406, end: 20230406
  4. ONDANSETRON [Suspect]
     Active Substance: ONDANSETRON
     Indication: Nausea
  5. ONDANSETRON [Suspect]
     Active Substance: ONDANSETRON
     Indication: Vomiting
  6. ONDANSETRON [Suspect]
     Active Substance: ONDANSETRON
     Indication: Lip swelling
  7. ONDANSETRON [Suspect]
     Active Substance: ONDANSETRON
     Indication: Dyspnoea
  8. SCOPOLAMINE [Suspect]
     Active Substance: SCOPOLAMINE
     Indication: Drug therapy
     Dosage: UNK
     Route: 065
     Dates: start: 20230406, end: 20230406
  9. SCOPOLAMINE [Suspect]
     Active Substance: SCOPOLAMINE
     Indication: Nausea
  10. SCOPOLAMINE [Suspect]
     Active Substance: SCOPOLAMINE
     Indication: Vomiting
  11. SCOPOLAMINE [Suspect]
     Active Substance: SCOPOLAMINE
     Indication: Lip swelling
  12. SCOPOLAMINE [Suspect]
     Active Substance: SCOPOLAMINE
     Indication: Dyspnoea

REACTIONS (7)
  - Premature labour [Recovered/Resolved]
  - Lip swelling [Recovered/Resolved]
  - Off label use [Unknown]
  - Nausea [Recovered/Resolved]
  - Vomiting [Recovered/Resolved]
  - Dyspnoea [Recovered/Resolved]
  - Exposure during pregnancy [Unknown]

NARRATIVE: CASE EVENT DATE: 20230406
